FAERS Safety Report 10234425 (Version 2)
Quarter: 2014Q2

REPORT INFORMATION
  Report Type: Spontaneous
  Country: JP (occurrence: JP)
  Receive Date: 20140613
  Receipt Date: 20140624
  Transmission Date: 20141212
  Serious: Yes (Hospitalization)
  Sender: FDA-Public Use
  Company Number: JP-ROCHE-1416125

PATIENT
  Age: 57 Year
  Sex: Male
  Weight: 79 kg

DRUGS (5)
  1. AVASTIN [Suspect]
     Indication: LUNG ADENOCARCINOMA METASTATIC
     Route: 041
     Dates: start: 20140122
  2. ALIMTA [Concomitant]
     Indication: LUNG ADENOCARCINOMA METASTATIC
     Dosage: COMPLETED TREATMENT CYCLE NUMBER: 4
     Route: 041
     Dates: start: 20140122, end: 20140401
  3. CARBOPLATIN [Concomitant]
     Indication: LUNG ADENOCARCINOMA METASTATIC
     Route: 041
     Dates: start: 20140122, end: 20140401
  4. PANVITAN [Concomitant]
     Indication: PROPHYLAXIS
     Route: 048
     Dates: start: 20140115, end: 20140401
  5. NEXIUM [Concomitant]
     Indication: PROPHYLAXIS
     Route: 048
     Dates: start: 20140115

REACTIONS (3)
  - Retinal detachment [Recovered/Resolved]
  - Blood pressure increased [Unknown]
  - Hepatic function abnormal [Recovering/Resolving]
